FAERS Safety Report 5784241-7 (Version None)
Quarter: 2008Q2

REPORT INFORMATION
  Report Type: 
  Country: None (occurrence: None)
  Receive Date: 20080624
  Receipt Date: 20070515
  Transmission Date: 20081010
  Serious: No
  Sender: FDA-Public Use
  Company Number: US-ASTRAZENECA-2007UW12355

PATIENT
  Age: 62 Year
  Sex: Male
  Weight: 90.3 kg

DRUGS (2)
  1. PULMICORT [Suspect]
     Indication: ASTHMA
     Route: 055
     Dates: start: 20040101
  2. 14 OTHER UNSPECIFIED MEDICATIONS [Concomitant]

REACTIONS (2)
  - ASTHMA [None]
  - DRUG INEFFECTIVE [None]
